FAERS Safety Report 9868055 (Version 3)
Quarter: 2014Q3

REPORT INFORMATION
  Report Type: Report from Study
  Country: US (occurrence: US)
  Receive Date: 20140204
  Receipt Date: 20140722
  Transmission Date: 20150326
  Serious: Yes (Hospitalization)
  Sender: FDA-Public Use
  Company Number: US-ACTELION-A-US2012-70942

PATIENT
  Age: 8 Year
  Sex: Male

DRUGS (5)
  1. VENTAVIS [Suspect]
     Active Substance: ILOPROST
     Indication: PULMONARY ARTERIAL HYPERTENSION
     Dosage: 2.5 MCG, 3-9XDAY
     Route: 055
  2. TYVASO [Concomitant]
     Active Substance: TREPROSTINIL
  3. VENTAVIS [Suspect]
     Active Substance: ILOPROST
     Dosage: 5.0 MCG
     Route: 055
     Dates: start: 20060922
  4. SILDENAFIL [Concomitant]
     Active Substance: SILDENAFIL
     Indication: PULMONARY ARTERIAL HYPERTENSION
  5. COUMADIN [Concomitant]
     Active Substance: WARFARIN SODIUM

REACTIONS (4)
  - Flushing [Unknown]
  - Otorhinolaryngological surgery [Unknown]
  - Procedural headache [Unknown]
  - Headache [Unknown]

NARRATIVE: CASE EVENT DATE: 2013
